FAERS Safety Report 8289015-3 (Version None)
Quarter: 2012Q2

REPORT INFORMATION
  Report Type: 
  Country: None (occurrence: None)
  Receive Date: 20120417
  Receipt Date: 20120403
  Transmission Date: 20120825
  Serious: Yes (Death, Life-Threatening, Hospitalization)
  Sender: FDA-Public Use
  Company Number: US-JNJFOC-20110611913

PATIENT
  Sex: Female
  Weight: 73.35 kg

DRUGS (41)
  1. ETRAVIRINE [Suspect]
     Indication: HIV INFECTION
     Route: 048
     Dates: start: 20110329, end: 20110531
  2. TRUVADA [Concomitant]
     Indication: HIV INFECTION
     Route: 048
     Dates: start: 20110329, end: 20110531
  3. LAC-HYDRIN [Concomitant]
     Indication: DRY SKIN
     Route: 061
     Dates: start: 20110617
  4. AMBIEN [Concomitant]
     Route: 048
     Dates: start: 20091020
  5. VALTREX [Concomitant]
     Route: 048
     Dates: start: 20091019
  6. BACTRIM [Concomitant]
     Route: 048
     Dates: start: 20090918
  7. LIPITOR [Concomitant]
     Route: 048
     Dates: start: 20110826
  8. METFORMIN HCL [Concomitant]
     Route: 048
     Dates: start: 20110502
  9. ULTRACET [Concomitant]
  10. DARUNAVIR ETHANOLATE [Suspect]
     Route: 048
     Dates: start: 20110329, end: 20110531
  11. STROVITE FORTE [Concomitant]
     Route: 048
     Dates: start: 20030821
  12. LOMOTIL [Concomitant]
     Indication: DIARRHOEA
     Route: 048
     Dates: start: 20100222
  13. LAMIVUDINE [Concomitant]
     Indication: HIV INFECTION
     Route: 048
     Dates: start: 20110816
  14. PROMETHAZINE W/ CODEINE [Concomitant]
     Indication: COUGH
  15. RALTEGRAVIR [Concomitant]
     Route: 048
     Dates: start: 20110329, end: 20110531
  16. DIOVAN HCT [Concomitant]
     Route: 048
     Dates: start: 20090922
  17. NORVASC [Concomitant]
     Route: 048
     Dates: start: 20100921
  18. ALLEGRA [Concomitant]
     Route: 048
     Dates: start: 20110722
  19. METHADONE HCL [Concomitant]
     Dates: start: 20090818
  20. POTASSIUM CHLORIDE [Concomitant]
     Route: 048
     Dates: start: 20091123
  21. SEROQUEL [Concomitant]
     Dates: start: 20110311
  22. WESTCORT [Concomitant]
     Route: 061
     Dates: start: 20110617
  23. ABACAVIR [Suspect]
     Indication: HIV INFECTION
     Dates: start: 20110816
  24. RALTEGRAVIR [Concomitant]
     Indication: HIV INFECTION
     Route: 048
     Dates: start: 20110816, end: 20110904
  25. ADVAIR DISKUS 100/50 [Concomitant]
     Route: 055
     Dates: start: 20091002
  26. PROVENTIL [Concomitant]
     Indication: DYSPNOEA
     Route: 055
     Dates: start: 20040224
  27. PROMETHAZINE W/ CODEINE [Concomitant]
     Indication: UPPER RESPIRATORY TRACT INFECTION
  28. DARUNAVIR ETHANOLATE [Suspect]
     Indication: HIV INFECTION
     Route: 048
     Dates: start: 20110816, end: 20110904
  29. RITONAVIR [Suspect]
     Indication: HIV INFECTION
     Route: 048
     Dates: start: 20110329, end: 20110531
  30. RITONAVIR [Suspect]
     Route: 048
     Dates: start: 20110816, end: 20110904
  31. TRUVADA [Concomitant]
     Route: 048
     Dates: start: 20090922
  32. METHADONE HCL [Concomitant]
     Dates: start: 20110805
  33. IBUPROFEN [Concomitant]
     Route: 048
     Dates: start: 20070611
  34. VALSARTAN [Concomitant]
  35. DIOVAN HCT [Concomitant]
     Route: 048
     Dates: start: 20110805
  36. ADVAIR DISKUS 100/50 [Concomitant]
     Route: 055
     Dates: start: 20070820
  37. STROVITE [Concomitant]
     Route: 048
     Dates: start: 20060707
  38. PERCOCET [Concomitant]
     Dates: start: 20101110
  39. ZITHROMAX [Concomitant]
     Dates: start: 20101123
  40. LOTRISONE [Concomitant]
     Dates: start: 20110722
  41. MULTI-VITAMINS [Concomitant]

REACTIONS (5)
  - HEPATIC FAILURE [None]
  - SEPTIC SHOCK [None]
  - RASH [None]
  - RENAL FAILURE ACUTE [None]
  - UROSEPSIS [None]
